FAERS Safety Report 23866471 (Version 1)
Quarter: 2024Q2

REPORT INFORMATION
  Report Type: Spontaneous
  Country: CA (occurrence: CA)
  Receive Date: 20240517
  Receipt Date: 20240517
  Transmission Date: 20240716
  Serious: Yes (Hospitalization)
  Sender: FDA-Public Use
  Company Number: CA-PFIZER INC-202400106076

PATIENT
  Age: 41 Year
  Sex: Female
  Weight: 106.4 kg

DRUGS (6)
  1. INFLECTRA [Suspect]
     Active Substance: INFLIXIMAB-DYYB
     Indication: Crohn^s disease
     Dosage: 600 MG, EVERY 8 WEEKS
     Route: 042
     Dates: start: 20240315
  2. INFLECTRA [Suspect]
     Active Substance: INFLIXIMAB-DYYB
     Dosage: 600 MG, EVERY 8 WEEKS
     Route: 042
     Dates: start: 20240510
  3. HUMIRA [Concomitant]
     Active Substance: ADALIMUMAB
     Dosage: UNK
  4. IMURAN [Concomitant]
     Active Substance: AZATHIOPRINE
     Dosage: UNK
  5. IUD NOS [Concomitant]
     Active Substance: COPPER OR LEVONORGESTREL
     Dosage: UNK
  6. OMNARIS [Concomitant]
     Active Substance: CICLESONIDE
     Dosage: UNK

REACTIONS (2)
  - Cardiovascular disorder [Recovered/Resolved]
  - Abscess [Not Recovered/Not Resolved]

NARRATIVE: CASE EVENT DATE: 20240510
